FAERS Safety Report 23293066 (Version 2)
Quarter: 2024Q1

REPORT INFORMATION
  Report Type: Spontaneous
  Country: US (occurrence: US)
  Receive Date: 20231213
  Receipt Date: 20240215
  Transmission Date: 20240409
  Serious: Yes (Other)
  Sender: FDA-Public Use
  Company Number: US-PFIZER INC-202300440209

PATIENT
  Age: 52 Year
  Sex: Female

DRUGS (1)
  1. XELJANZ [Suspect]
     Active Substance: TOFACITINIB CITRATE
     Dosage: 5MG

REACTIONS (6)
  - Diabetes mellitus [Unknown]
  - Cerebral disorder [Unknown]
  - Muscle disorder [Unknown]
  - Dyspepsia [Unknown]
  - Arthropathy [Unknown]
  - Illness [Unknown]

NARRATIVE: CASE EVENT DATE: 20240212
